FAERS Safety Report 9631199 (Version 2)
Quarter: 2013Q4

REPORT INFORMATION
  Report Type: Spontaneous
  Country: US (occurrence: US)
  Receive Date: 20131018
  Receipt Date: 20131031
  Transmission Date: 20140711
  Serious: Yes (Life-Threatening, Hospitalization)
  Sender: FDA-Public Use
  Company Number: US-JNJFOC-20131006868

PATIENT
  Age: 72 Year
  Sex: Female
  Weight: 63.5 kg

DRUGS (8)
  1. XARELTO [Suspect]
     Indication: DEEP VEIN THROMBOSIS
     Route: 048
     Dates: start: 20131001
  2. ADVAIR [Concomitant]
     Route: 055
  3. PANTOPRAZOLE [Concomitant]
     Route: 065
  4. DIFLUCAN [Concomitant]
  5. ASACOL [Concomitant]
     Route: 065
  6. WARFARIN [Concomitant]
     Route: 065
  7. LOVENOX [Concomitant]
     Route: 065
  8. PREMARIN [Concomitant]
     Route: 065

REACTIONS (1)
  - Atrial fibrillation [Recovered/Resolved with Sequelae]
